FAERS Safety Report 15567437 (Version 11)
Quarter: 2021Q2

REPORT INFORMATION
  Report Type: Spontaneous
  Country: US (occurrence: US)
  Receive Date: 20181030
  Receipt Date: 20210409
  Transmission Date: 20210716
  Serious: Yes (Other)
  Sender: FDA-Public Use
  Company Number: US-PFIZER INC-2018431416

PATIENT
  Age: 67 Year
  Sex: Female
  Weight: 111.13 kg

DRUGS (9)
  1. METHOCARBAMOL. [Concomitant]
     Active Substance: METHOCARBAMOL
     Indication: MUSCLE SPASMS
     Dosage: 500 MG
  2. LYRICA [Suspect]
     Active Substance: PREGABALIN
     Indication: BACK PAIN
     Dosage: 150 MG, 2X/DAY
     Route: 048
  3. LYRICA [Suspect]
     Active Substance: PREGABALIN
     Indication: SCIATICA
     Dosage: 150 MG, 1X/DAY
     Route: 048
  4. LYRICA [Suspect]
     Active Substance: PREGABALIN
     Dosage: 150 MG, 2X/DAY
     Dates: start: 2018
  5. LYRICA [Suspect]
     Active Substance: PREGABALIN
     Dosage: 150 MG, 2X/DAY
     Route: 048
  6. LISINOPRIL. [Concomitant]
     Active Substance: LISINOPRIL
     Indication: BLOOD PRESSURE INCREASED
     Dosage: 5 MG, 1X/DAY
     Dates: start: 20191018
  7. LYRICA [Suspect]
     Active Substance: PREGABALIN
     Dosage: 200 MG, 2X/DAY
     Route: 048
  8. BACLOFEN. [Concomitant]
     Active Substance: BACLOFEN
     Dosage: 10 MG, AS NEEDED (FOR 30 DAYS)
     Dates: start: 20190913
  9. NAPROXEN. [Concomitant]
     Active Substance: NAPROXEN
     Dosage: 50 MG, AS NEEDED

REACTIONS (11)
  - Feeling drunk [Unknown]
  - Neuropathy peripheral [Unknown]
  - Dizziness [Unknown]
  - Muscle spasms [Recovering/Resolving]
  - Limb discomfort [Unknown]
  - Foot deformity [Unknown]
  - Intentional product use issue [Unknown]
  - Peripheral vascular disorder [Unknown]
  - Condition aggravated [Recovering/Resolving]
  - Drug ineffective [Unknown]
  - Weight increased [Unknown]
